FAERS Safety Report 9373817 (Version 3)
Quarter: 2013Q3

REPORT INFORMATION
  Report Type: Spontaneous
  Country: DE (occurrence: DE)
  Receive Date: 20130628
  Receipt Date: 20130806
  Transmission Date: 20140515
  Serious: Yes (Life-Threatening, Hospitalization)
  Sender: FDA-Public Use
  Company Number: DE-AMGEN-DEUSP2013045329

PATIENT
  Age: 53 Year
  Sex: Male
  Weight: 82 kg

DRUGS (11)
  1. ENBREL [Suspect]
     Indication: RHEUMATOID ARTHRITIS
     Dosage: 50 MG, WEEKLY
     Route: 058
     Dates: start: 200803, end: 201303
  2. METHOTREXATE SODIUM [Suspect]
     Indication: RHEUMATOID ARTHRITIS
     Dosage: 20 MG, WEEKLY
     Route: 065
     Dates: start: 200705, end: 201303
  3. VALORON N                          /00628301/ [Concomitant]
     Dosage: UNK
  4. PANTOPRAZOL [Concomitant]
     Dosage: UNK
  5. ARCOXIA [Concomitant]
     Dosage: UNK
  6. NOVAMINOSULFON [Concomitant]
     Dosage: UNK
  7. ALENDRONIC ACID [Concomitant]
     Dosage: UNK
  8. VENLAFAXINE [Concomitant]
     Dosage: UNK
  9. ASS [Concomitant]
     Dosage: UNK
  10. SIMVASTATIN [Concomitant]
     Dosage: UNK
  11. ARAVA [Concomitant]
     Dosage: UNK
     Dates: start: 200708, end: 200801

REACTIONS (3)
  - Bronchial carcinoma [Not Recovered/Not Resolved]
  - Bronchitis chronic [Unknown]
  - Metastases to central nervous system [Not Recovered/Not Resolved]
